FAERS Safety Report 13863847 (Version 1)
Quarter: 2017Q3

REPORT INFORMATION
  Report Type: Spontaneous
  Country: CN (occurrence: CN)
  Receive Date: 20170814
  Receipt Date: 20170814
  Transmission Date: 20171127
  Serious: Yes (Hospitalization)
  Sender: FDA-Public Use
  Company Number: CN-BAYER-2017-149891

PATIENT
  Age: 48 Year
  Sex: Male

DRUGS (3)
  1. NEXAVAR [Suspect]
     Active Substance: SORAFENIB
     Indication: HEPATOCELLULAR CARCINOMA
     Dosage: 300 MG, BID
     Route: 048
  2. ENTECAVIR. [Concomitant]
     Active Substance: ENTECAVIR
  3. NEXAVAR [Suspect]
     Active Substance: SORAFENIB
     Indication: HEPATOCELLULAR CARCINOMA
     Dosage: 400 MG, BID
     Route: 048

REACTIONS (6)
  - Diarrhoea [Recovering/Resolving]
  - Pain in extremity [Recovering/Resolving]
  - Peripheral swelling [None]
  - Secondary hypertension [Recovered/Resolved]
  - Dizziness [None]
  - Renal artery stenosis [Recovering/Resolving]
